APPROVED DRUG PRODUCT: DUAKLIR PRESSAIR
Active Ingredient: ACLIDINIUM BROMIDE; FORMOTEROL FUMARATE
Strength: 0.4MG/INH;0.012MG/INH
Dosage Form/Route: POWDER, METERED;INHALATION
Application: N210595 | Product #001
Applicant: COVIS PHARMA GMBH
Approved: Mar 29, 2019 | RLD: Yes | RS: Yes | Type: RX

PATENTS:
Patent 10085974 | Expires: Mar 13, 2029
Patent 11000517 | Expires: Mar 13, 2029